FAERS Safety Report 9486592 (Version 2)
Quarter: 2015Q2

REPORT INFORMATION
  Report Type: Spontaneous
  Country: PL (occurrence: PL)
  Receive Date: 20130829
  Receipt Date: 20150401
  Transmission Date: 20150821
  Serious: Yes (Death, Other)
  Sender: FDA-Public Use
  Company Number: PHHY2013PL093733

PATIENT
  Sex: Female

DRUGS (1)
  1. VOTUBIA [Suspect]
     Active Substance: EVEROLIMUS
     Dosage: 10 MG, QD
     Route: 065

REACTIONS (16)
  - Ovarian cyst torsion [Unknown]
  - C-reactive protein increased [Unknown]
  - Haemoglobin decreased [Recovered/Resolved]
  - Multi-organ failure [Fatal]
  - Sepsis [Fatal]
  - Escherichia infection [Fatal]
  - Oligomenorrhoea [Unknown]
  - Hypercholesterolaemia [Unknown]
  - Leukopenia [Unknown]
  - Neutropenia [Unknown]
  - Abdominal pain [Unknown]
  - Septic shock [Fatal]
  - Hypotension [Fatal]
  - General physical health deterioration [Fatal]
  - Uterine haemorrhage [Fatal]
  - Ovarian cyst [Unknown]
